FAERS Safety Report 10139806 (Version 2)
Quarter: 2014Q2

REPORT INFORMATION
  Report Type: Spontaneous
  Country: DE (occurrence: DE)
  Receive Date: 20140429
  Receipt Date: 20140604
  Transmission Date: 20141212
  Serious: Yes (Other)
  Sender: FDA-Public Use
  Company Number: DE-ALEXION PHARMACEUTICALS INC.-A201401488

PATIENT
  Sex: 0

DRUGS (3)
  1. SOLIRIS 300MG [Suspect]
     Indication: HAEMOLYTIC URAEMIC SYNDROME
     Dosage: 900 MG, QW
     Route: 042
     Dates: start: 201312, end: 201401
  2. SOLIRIS 300MG [Suspect]
     Dosage: 1200 MG, Q2W
     Route: 042
     Dates: start: 201401
  3. MITOMYCIN [Concomitant]
     Indication: NEOPLASM MALIGNANT
     Route: 065

REACTIONS (2)
  - Metastatic gastric cancer [Unknown]
  - Inappropriate schedule of drug administration [Unknown]
